FAERS Safety Report 13014438 (Version 1)
Quarter: 2016Q4

REPORT INFORMATION
  Report Type: Report from Study
  Country: US (occurrence: US)
  Receive Date: 20161209
  Receipt Date: 20161209
  Transmission Date: 20170207
  Serious: Yes (Other)
  Sender: FDA-Public Use
  Company Number: US-MYLANLABS-2016M1054048

PATIENT

DRUGS (1)
  1. MELPHALAN [Suspect]
     Active Substance: MELPHALAN
     Indication: CONGENITAL RETINOBLASTOMA
     Dosage: 2 INJECTIONS OF 30 MICROG/0.07ML WEEKLY
     Route: 050

REACTIONS (3)
  - Retinal haemorrhage [Recovered/Resolved]
  - Retinopathy [Recovered/Resolved]
  - Retinal vasculitis [Recovered/Resolved]
